FAERS Safety Report 6014364-9 (Version None)
Quarter: 2008Q4

REPORT INFORMATION
  Report Type: 
  Country: None (occurrence: None)
  Receive Date: 20081219
  Receipt Date: 20081120
  Transmission Date: 20090506
  Serious: No
  Sender: FDA-Public Use
  Company Number: A0727316A

PATIENT
  Age: 76 Year
  Sex: Male

DRUGS (5)
  1. AVODART [Suspect]
     Indication: PROSTATIC DISORDER
     Dosage: .5MG PER DAY
     Route: 048
     Dates: start: 20060101, end: 20081105
  2. GLUCOPHAGE [Concomitant]
  3. DIOVAN [Concomitant]
  4. GLUCOTROL [Concomitant]
  5. ASPIRIN [Concomitant]

REACTIONS (6)
  - DRUG INEFFECTIVE [None]
  - FEELING ABNORMAL [None]
  - MOVEMENT DISORDER [None]
  - MUSCLE DISORDER [None]
  - MUSCULOSKELETAL PAIN [None]
  - THERAPEUTIC RESPONSE UNEXPECTED [None]
